FAERS Safety Report 8171133-1 (Version None)
Quarter: 2012Q1

REPORT INFORMATION
  Report Type: 
  Country: None (occurrence: None)
  Receive Date: 20120228
  Receipt Date: 20120213
  Transmission Date: 20120608
  Serious: Yes (Hospitalization)
  Sender: FDA-Public Use
  Company Number: JP-PFIZER INC-2012049435

PATIENT
  Age: 19 Year
  Sex: Male

DRUGS (4)
  1. ETOPOSIDE [Suspect]
     Dosage: 60 MG/M2 FOR 5 CONSECUTIVE DAYS WITH CISPLATIN
  2. CARBOPLATIN [Suspect]
     Indication: GERM CELL CANCER
     Dosage: 400 MG/M2 (ONE CYCLE FOR 3 CONSECUTIVE DAYS) AND ETOPOSIDE
  3. ETOPOSIDE [Suspect]
     Indication: GERM CELL CANCER
     Dosage: ONE COURSE OF 100 MG/M2 FOR 3 CONSECUTIVE DAYS WITH CARBOPLATIN
  4. CISPLATIN [Suspect]
     Indication: GERM CELL CANCER
     Dosage: 20 MG/M2 AND ETOPOSIDE FOR 5 CONSECUTIVE DAYS

REACTIONS (2)
  - NEOPLASM MALIGNANT [None]
  - MENINGIOMA [None]
